FAERS Safety Report 9606736 (Version 2)
Quarter: 2013Q4

REPORT INFORMATION
  Report Type: Spontaneous
  Country: US (occurrence: US)
  Receive Date: 20131008
  Receipt Date: 20131008
  Transmission Date: 20140711
  Serious: No
  Sender: FDA-Public Use
  Company Number: US-AMGEN-USASP2013061752

PATIENT
  Age: 66 Year
  Sex: Female
  Weight: 64.4 kg

DRUGS (5)
  1. PROLIA [Suspect]
     Indication: BONE LOSS
     Dosage: UNK UNK, Q6MO
     Route: 065
     Dates: start: 201210
  2. ARIMIDEX [Concomitant]
     Route: 065
  3. AROMASIN [Concomitant]
     Route: 065
  4. ANASTROZOLE [Concomitant]
  5. VIACTIV                            /00751501/ [Concomitant]

REACTIONS (5)
  - Mobility decreased [Recovering/Resolving]
  - Arthralgia [Recovering/Resolving]
  - Weight increased [Unknown]
  - Myalgia [Unknown]
  - Pain in extremity [Recovering/Resolving]
